FAERS Safety Report 4988247-7 (Version None)
Quarter: 2006Q2

REPORT INFORMATION
  Report Type: 
  Country: None (occurrence: None)
  Receive Date: 20060425
  Receipt Date: 20060413
  Transmission Date: 20061013
  Serious: Yes (Life-Threatening)
  Sender: FDA-Public Use
  Company Number: 2006051315

PATIENT
  Age: 67 Year
  Sex: Male

DRUGS (1)
  1. DIFLUCAN [Suspect]
     Indication: ILL-DEFINED DISORDER
     Dosage: 200 MG, ORAL
     Route: 048
     Dates: start: 20060301, end: 20060309

REACTIONS (3)
  - ALVEOLITIS ALLERGIC [None]
  - DRUG ERUPTION [None]
  - RASH [None]
